FAERS Safety Report 5173835-8 (Version None)
Quarter: 2006Q4

REPORT INFORMATION
  Report Type: 
  Country: None (occurrence: None)
  Receive Date: 20061214
  Receipt Date: 20061212
  Transmission Date: 20070319
  Serious: Yes (Hospitalization)
  Sender: FDA-Public Use
  Company Number: FR-GLAXOSMITHKLINE-B0450258A

PATIENT
  Age: 27 Year
  Sex: Female

DRUGS (3)
  1. AUGMENTIN '125' [Suspect]
     Indication: WOUND INFECTION
     Route: 065
     Dates: start: 20060422, end: 20060501
  2. GENTAMICIN [Concomitant]
     Indication: WOUND INFECTION
     Route: 065
     Dates: start: 20060422
  3. PYOSTACINE [Concomitant]
     Route: 065
     Dates: start: 20060501, end: 20060502

REACTIONS (4)
  - PARAESTHESIA [None]
  - PRURITUS [None]
  - RASH MACULO-PAPULAR [None]
  - TOXIC SKIN ERUPTION [None]
